FAERS Safety Report 9951038 (Version 1)
Quarter: 2014Q1

REPORT INFORMATION
  Report Type: Spontaneous
  Country: NL (occurrence: NL)
  Receive Date: 20140304
  Receipt Date: 20140304
  Transmission Date: 20141002
  Serious: Yes (Death, Hospitalization)
  Sender: FDA-Public Use
  Company Number: NL-AMGEN-NLDSP2012085135

PATIENT
  Sex: Male

DRUGS (2)
  1. ARANESP [Suspect]
     Indication: MYELODYSPLASTIC SYNDROME
     Dosage: 150 MUG, UNK
     Route: 058
     Dates: start: 20120530
  2. ARANESP [Suspect]
     Indication: ANAEMIA

REACTIONS (2)
  - Death [Fatal]
  - Investigation [Recovered/Resolved]
